FAERS Safety Report 6409702-9 (Version None)
Quarter: 2009Q4

REPORT INFORMATION
  Report Type: 
  Country: None (occurrence: None)
  Receive Date: 20091022
  Receipt Date: 20091008
  Transmission Date: 20100525
  Serious: Yes (Hospitalization)
  Sender: FDA-Public Use
  Company Number: PHHY2009US44625

PATIENT
  Age: 70 Year
  Sex: Male

DRUGS (24)
  1. PAMIDRONATE DISODIUM [Suspect]
  2. DEXAMETHASONE 0.5MG TAB [Suspect]
  3. PARACETAMOL [Suspect]
  4. PANTOPRAZOLE SODIUM [Suspect]
  5. THALIDOMIDE [Concomitant]
  6. MELOXICAM [Concomitant]
  7. CEFEPIME [Concomitant]
  8. VANCOMYCIN [Concomitant]
  9. FLUCONAZOLE [Concomitant]
  10. MORPHINE [Concomitant]
  11. HEPARIN [Concomitant]
  12. ENOXAPARIN SODIUM [Concomitant]
  13. RANITIDINE [Concomitant]
  14. HYDROCODONE [Concomitant]
  15. OMEPRAZOLE [Concomitant]
  16. LIDOCAINE [Concomitant]
  17. PEG 3350 AND ELECTROLYTES [Concomitant]
  18. TESTOSTERONE ENANTHATE [Concomitant]
  19. NALOXONE [Concomitant]
  20. NEUPOGEN [Concomitant]
  21. ALPRAZOLAM [Concomitant]
  22. AMIODARONE [Concomitant]
  23. ZOLPIDEM [Concomitant]
  24. DIPHENHYDRAMINE HCL [Concomitant]

REACTIONS (15)
  - ACUTE GENERALISED EXANTHEMATOUS PUSTULOSIS [None]
  - ATRIAL FIBRILLATION [None]
  - BACK PAIN [None]
  - BLISTER [None]
  - ERYTHEMA [None]
  - FEBRILE NEUTROPENIA [None]
  - GENERALISED OEDEMA [None]
  - ORAL CANDIDIASIS [None]
  - PHARYNGITIS [None]
  - PSEUDOMONAS INFECTION [None]
  - PYREXIA [None]
  - RASH [None]
  - RASH PUSTULAR [None]
  - SKIN EXFOLIATION [None]
  - STREPTOCOCCAL INFECTION [None]
